FAERS Safety Report 23442827 (Version 1)
Quarter: 2024Q1

REPORT INFORMATION
  Report Type: Spontaneous
  Country: US (occurrence: None)
  Receive Date: 20240124
  Receipt Date: 20240124
  Transmission Date: 20240410
  Serious: No
  Sender: FDA-Public Use
  Company Number: None

PATIENT
  Age: 76 Year
  Sex: Male
  Weight: 74.25 kg

DRUGS (5)
  1. BUPROPION [Suspect]
     Active Substance: BUPROPION
     Indication: Ex-tobacco user
     Dosage: OTHER QUANTITY : 60 TABLET(S);?FREQUENCY : DAILY;?
     Route: 048
     Dates: start: 20240109, end: 20240112
  2. METOPROLOL [Concomitant]
     Active Substance: METOPROLOL
  3. Nefedeprine [Concomitant]
  4. ASPIRIN [Concomitant]
     Active Substance: ASPIRIN
  5. UNSPECIFIED INGREDIENT [Concomitant]
     Active Substance: UNSPECIFIED INGREDIENT

REACTIONS (2)
  - Tic [None]
  - Muscle twitching [None]

NARRATIVE: CASE EVENT DATE: 20240110
